FAERS Safety Report 11351869 (Version 1)
Quarter: 2015Q3

REPORT INFORMATION
  Report Type: Spontaneous
  Country: US (occurrence: US)
  Receive Date: 20150807
  Receipt Date: 20150807
  Transmission Date: 20151125
  Serious: No
  Sender: FDA-Public Use
  Company Number: US-JNJFOC-20141018335

PATIENT
  Sex: Male
  Weight: 108.86 kg

DRUGS (2)
  1. PEPCID COMPLETE [Suspect]
     Active Substance: CALCIUM CARBONATE\FAMOTIDINE\MAGNESIUM HYDROXIDE
     Route: 048
  2. PEPCID COMPLETE [Suspect]
     Active Substance: CALCIUM CARBONATE\FAMOTIDINE\MAGNESIUM HYDROXIDE
     Indication: DYSPEPSIA
     Dosage: 2 CHEWS, A DAY
     Route: 048
     Dates: end: 20141021

REACTIONS (2)
  - Diarrhoea [Recovering/Resolving]
  - Therapeutic response decreased [Unknown]
